FAERS Safety Report 21601046 (Version 2)
Quarter: 2022Q4

REPORT INFORMATION
  Report Type: Report from Study
  Country: PR (occurrence: PR)
  Receive Date: 20221116
  Receipt Date: 20221118
  Transmission Date: 20230113
  Serious: No
  Sender: FDA-Public Use
  Company Number: PR-ABBVIE-4158062

PATIENT
  Sex: Male
  Weight: 118 kg

DRUGS (5)
  1. HUMIRA [Suspect]
     Active Substance: ADALIMUMAB
     Indication: Uveitis
     Dosage: 40MG/0.4ML
     Route: 058
  2. HUMIRA [Suspect]
     Active Substance: ADALIMUMAB
  3. COVID-19 mRNA Vaccine BNT162b2 (Tozinameran) [Concomitant]
     Indication: COVID-19 immunisation
     Dosage: 3RD DOSE 1 IN ONCE
     Route: 030
  4. COVID-19 mRNA Vaccine BNT162b2 (Tozinameran) [Concomitant]
     Indication: COVID-19 immunisation
     Dosage: 2ND DOSE 1 IN ONCE
     Route: 030
  5. COVID-19 mRNA Vaccine BNT162b2 (Tozinameran) [Concomitant]
     Indication: COVID-19 immunisation
     Dosage: 1ST DOSE 1 IN ONCE
     Route: 030

REACTIONS (5)
  - SARS-CoV-2 test positive [Recovering/Resolving]
  - Cough [Recovering/Resolving]
  - Unevaluable event [Recovering/Resolving]
  - Sneezing [Recovering/Resolving]
  - Lacrimation increased [Recovering/Resolving]

NARRATIVE: CASE EVENT DATE: 20221002
